FAERS Safety Report 7965390-1 (Version None)
Quarter: 2011Q4

REPORT INFORMATION
  Report Type: 
  Country: None (occurrence: None)
  Receive Date: 20111208
  Receipt Date: 20111125
  Transmission Date: 20120403
  Serious: Yes (Death, Hospitalization)
  Sender: FDA-Public Use
  Company Number: KR-ACTELION-A-CH2011-57560

PATIENT
  Sex: Female
  Weight: 50 kg

DRUGS (1)
  1. TRACLEER [Suspect]
     Indication: PULMONARY ARTERIAL HYPERTENSION
     Dosage: 125 MG, BID
     Route: 048
     Dates: start: 20070410, end: 20100924

REACTIONS (15)
  - BRAIN NATRIURETIC PEPTIDE INCREASED [None]
  - LUNG INFECTION [None]
  - COUGH [None]
  - CHEST DISCOMFORT [None]
  - CARDIAC TAMPONADE [None]
  - RESUSCITATION [None]
  - PYREXIA [None]
  - ASPARTATE AMINOTRANSFERASE INCREASED [None]
  - BLOOD GASES ABNORMAL [None]
  - BLOOD PRESSURE DECREASED [None]
  - ALANINE AMINOTRANSFERASE INCREASED [None]
  - CARDIO-RESPIRATORY ARREST [None]
  - DYSPNOEA [None]
  - ENDOTRACHEAL INTUBATION [None]
  - LIVER FUNCTION TEST ABNORMAL [None]
